FAERS Safety Report 13933840 (Version 1)
Quarter: 2017Q3

REPORT INFORMATION
  Report Type: Spontaneous
  Country: US (occurrence: US)
  Receive Date: 20170904
  Receipt Date: 20170904
  Transmission Date: 20171127
  Serious: No
  Sender: FDA-Public Use
  Company Number: US-TOLMAR, INC.-2017US000851

PATIENT
  Age: 90 Year
  Sex: Male

DRUGS (5)
  1. ELIGARD [Suspect]
     Active Substance: LEUPROLIDE ACETATE
     Indication: PROSTATE CANCER
     Dosage: 45 MG, 6 MONTH DOSE
     Route: 065
     Dates: start: 20161025
  2. ELIGARD [Suspect]
     Active Substance: LEUPROLIDE ACETATE
     Indication: PROSTATE CANCER
     Dosage: 7.5 MG, UNK
     Route: 065
     Dates: start: 2014
  3. ZYTIGA [Concomitant]
     Active Substance: ABIRATERONE ACETATE
     Dosage: UNK
     Dates: end: 20161216
  4. XTANDI [Suspect]
     Active Substance: ENZALUTAMIDE
     Dosage: UNK
     Dates: start: 20161026, end: 20161216
  5. PREDNISONE. [Concomitant]
     Active Substance: PREDNISONE
     Dosage: UNK
     Dates: end: 20161216

REACTIONS (3)
  - Paraesthesia [Recovering/Resolving]
  - Hypoaesthesia [Recovering/Resolving]
  - Prostatic specific antigen increased [Unknown]

NARRATIVE: CASE EVENT DATE: 201610
